FAERS Safety Report 18202884 (Version 1)
Quarter: 2020Q3

REPORT INFORMATION
  Report Type: Spontaneous
  Country: US (occurrence: US)
  Receive Date: 20200827
  Receipt Date: 20200827
  Transmission Date: 20201103
  Serious: No
  Sender: FDA-Public Use
  Company Number: US-ELI_LILLY_AND_COMPANY-US202008011263

PATIENT
  Age: 30 Year
  Sex: Female

DRUGS (2)
  1. TOPIMAX [TOPIRAMATE] [Concomitant]
     Active Substance: TOPIRAMATE
     Indication: PRODUCT USED FOR UNKNOWN INDICATION
     Dosage: UNK, PRN
  2. EMGALITY [Suspect]
     Active Substance: GALCANEZUMAB-GNLM
     Indication: PRODUCT USED FOR UNKNOWN INDICATION
     Dosage: 1 DOSAGE FORM, UNKNOWN
     Route: 065
     Dates: start: 20200801

REACTIONS (4)
  - Dizziness [Unknown]
  - Paranoia [Unknown]
  - Depression [Unknown]
  - Tension headache [Unknown]

NARRATIVE: CASE EVENT DATE: 202008
